FAERS Safety Report 23080243 (Version 1)
Quarter: 2023Q4

REPORT INFORMATION
  Report Type: Spontaneous
  Country: US (occurrence: None)
  Receive Date: 20231018
  Receipt Date: 20231018
  Transmission Date: 20240110
  Serious: Yes (Death)
  Sender: FDA-Public Use
  Company Number: None

PATIENT
  Age: 22 Year
  Sex: Female
  Weight: 72 kg

DRUGS (5)
  1. YESCARTA [Suspect]
     Active Substance: AXICABTAGENE CILOLEUCEL
     Indication: Diffuse large B-cell lymphoma refractory
     Dosage: OTHER FREQUENCY : ONCE;?
     Route: 042
     Dates: start: 20230831, end: 20230831
  2. YESCARTA [Suspect]
     Active Substance: AXICABTAGENE CILOLEUCEL
     Indication: Diffuse large B-cell lymphoma recurrent
  3. SODIUM [Concomitant]
     Active Substance: SODIUM
  4. SODIUM [Concomitant]
     Active Substance: SODIUM
  5. SODIUM [Concomitant]
     Active Substance: SODIUM

REACTIONS (23)
  - Diffuse large B-cell lymphoma recurrent [None]
  - Febrile neutropenia [None]
  - Cytokine release syndrome [None]
  - Neurotoxicity [None]
  - Colitis [None]
  - Pneumonia [None]
  - Candida infection [None]
  - Hypoxia [None]
  - Respiratory failure [None]
  - Immune effector cell-associated neurotoxicity syndrome [None]
  - Immune effector cell-associated neurotoxicity syndrome [None]
  - Haemophagocytic lymphohistiocytosis [None]
  - Enterococcal infection [None]
  - Gastrointestinal carcinoma [None]
  - Hypertension [None]
  - Hypervolaemia [None]
  - Brain oedema [None]
  - Disseminated intravascular coagulation [None]
  - Acute myocardial infarction [None]
  - Pulmonary embolism [None]
  - Cardiac dysfunction [None]
  - Renal failure [None]
  - Respiratory acidosis [None]

NARRATIVE: CASE EVENT DATE: 20230916
